FAERS Safety Report 6543881-8 (Version None)
Quarter: 2010Q1

REPORT INFORMATION
  Report Type: 
  Country: None (occurrence: None)
  Receive Date: 20100120
  Receipt Date: 20100112
  Transmission Date: 20100710
  Serious: Yes (Hospitalization, Other)
  Sender: FDA-Public Use
  Company Number: GB-PFIZER INC-2010004658

PATIENT
  Age: 74 Year
  Sex: Female
  Weight: 62.4 kg

DRUGS (15)
  1. BLINDED *NO SUBJECT DRUG [Suspect]
     Indication: PULMONARY ARTERIAL HYPERTENSION
     Dosage: UNK
     Route: 048
     Dates: start: 20091209
  2. BLINDED *PLACEBO [Suspect]
     Indication: PULMONARY ARTERIAL HYPERTENSION
     Dosage: UNK
     Route: 048
     Dates: start: 20091209
  3. BLINDED SILDENAFIL CITRATE [Suspect]
     Indication: PULMONARY ARTERIAL HYPERTENSION
     Dosage: UNK
     Route: 048
     Dates: start: 20091209
  4. PREDNISOLONE [Concomitant]
     Dosage: 4 MG, UNK
     Route: 048
     Dates: start: 20080312
  5. BISOPROLOL [Concomitant]
     Dosage: 2.5 MG, UNK
     Route: 048
     Dates: start: 20050721
  6. OMEPRAZOLE [Concomitant]
     Dosage: 20 MG, UNK
     Dates: start: 20080312
  7. RISEDRONATE SODIUM [Concomitant]
     Dosage: 2.5 MG, UNK
     Route: 048
     Dates: start: 20081110
  8. ACETYLSALICYLIC ACID [Concomitant]
     Dosage: 75 MG, UNK
     Route: 048
     Dates: start: 20041110
  9. RAMIPRIL [Concomitant]
     Dosage: 5 MG, UNK
     Route: 048
     Dates: start: 20050915
  10. FLECAINIDE [Concomitant]
     Dosage: 50 MG, UNK
     Route: 048
     Dates: start: 20091028
  11. SIMVASTATIN [Concomitant]
     Dosage: 40 MG, UNK
     Route: 048
     Dates: start: 20051107
  12. DEXAMETHASONE [Concomitant]
     Dosage: UNK
     Route: 047
  13. OFLOXACIN [Concomitant]
     Dosage: UNK
     Route: 047
  14. LIQUIFILM TEARS [Concomitant]
     Dosage: UNK
     Route: 047
  15. ILUBE [Concomitant]
     Dosage: UNK
     Route: 047

REACTIONS (1)
  - ANKLE FRACTURE [None]
